FAERS Safety Report 7570284-X (Version None)
Quarter: 2011Q2

REPORT INFORMATION
  Report Type: 
  Country: None (occurrence: None)
  Receive Date: 20110624
  Receipt Date: 20110615
  Transmission Date: 20111010
  Serious: Yes (Other)
  Sender: FDA-Public Use
  Company Number: GB-JNJFOC-20110608879

PATIENT
  Sex: Female

DRUGS (3)
  1. NICORETTE [Suspect]
     Route: 045
  2. NICORETTE [Suspect]
     Indication: SMOKING CESSATION THERAPY
     Dosage: 50 NASAL SPRAYS A DAY
     Route: 045
  3. VARENICLINE [Concomitant]
     Indication: PRODUCT USED FOR UNKNOWN INDICATION

REACTIONS (2)
  - INTENTIONAL DRUG MISUSE [None]
  - DEPENDENCE [None]
